FAERS Safety Report 16141065 (Version 2)
Quarter: 2019Q2

REPORT INFORMATION
  Report Type: Spontaneous
  Country: US (occurrence: US)
  Receive Date: 20190401
  Receipt Date: 20190514
  Transmission Date: 20190711
  Serious: No
  Sender: FDA-Public Use
  Company Number: US-PFIZER INC-2019128352

PATIENT
  Age: 69 Year
  Sex: Female
  Weight: 76.66 kg

DRUGS (2)
  1. GABAPENTIN. [Suspect]
     Active Substance: GABAPENTIN
     Dosage: UNK, 2X/DAY (1 CAPSULE IN THE MORNING AND 2 CAPSULES AT NIGHT)
  2. GABAPENTIN. [Suspect]
     Active Substance: GABAPENTIN
     Dosage: 2 DF, 2X/DAY (2 CAPSULES IN THE MORNING AND 2 CAPSULES AT NIGHT)
     Dates: start: 2017

REACTIONS (2)
  - Feeling abnormal [Unknown]
  - Intentional product use issue [Unknown]

NARRATIVE: CASE EVENT DATE: 2017
